FAERS Safety Report 4535346-X (Version None)
Quarter: 2004Q4

REPORT INFORMATION
  Report Type: 
  Country: None (occurrence: None)
  Receive Date: 20041222
  Receipt Date: 20041214
  Transmission Date: 20050328
  Serious: Yes (Death)
  Sender: FDA-Public Use
  Company Number: US-JNJFOC-20041204675

PATIENT
  Sex: Female
  Weight: 125.19 kg

DRUGS (6)
  1. HALDOL [Suspect]
     Indication: DRUG USE FOR UNKNOWN INDICATION
     Route: 065
  2. CLOZAPINE [Suspect]
     Indication: SCHIZOAFFECTIVE DISORDER
     Route: 049
     Dates: start: 20040908, end: 20040926
  3. HYDROCHLOROTHIAZIDE [Concomitant]
     Indication: HYPERTENSION
     Route: 049
  4. LISINOPRIL [Concomitant]
     Route: 049
  5. METFORMIN HCL [Concomitant]
     Route: 049
  6. AMARYL [Concomitant]
     Route: 049

REACTIONS (6)
  - BRONCHITIS [None]
  - BRONCHITIS ACUTE [None]
  - COMA [None]
  - DRUG INEFFECTIVE [None]
  - DRUG INTERACTION [None]
  - RESPIRATORY FAILURE [None]
